FAERS Safety Report 4918160-2 (Version None)
Quarter: 2006Q1

REPORT INFORMATION
  Report Type: 
  Country: None (occurrence: None)
  Receive Date: 20060215
  Receipt Date: 20060207
  Transmission Date: 20060701
  Serious: Yes (Other)
  Sender: FDA-Public Use
  Company Number: GB-2006-002287

PATIENT
  Sex: Female

DRUGS (1)
  1. MIRENA [Suspect]
     Dosage: 20 ?G/DAY, CONT, INTRA-UTERINE
     Route: 015
     Dates: start: 20041201, end: 20051230

REACTIONS (5)
  - ANXIETY [None]
  - DEPRESSION [None]
  - STRESS [None]
  - STRESS AT WORK [None]
  - THERAPY NON-RESPONDER [None]
